FAERS Safety Report 4645868-9 (Version None)
Quarter: 2005Q2

REPORT INFORMATION
  Report Type: 
  Country: None (occurrence: None)
  Receive Date: 20050427
  Receipt Date: 20050216
  Transmission Date: 20051028
  Serious: No
  Sender: FDA-Public Use
  Company Number: US-BRISTOL-MYERS SQUIBB COMPANY-12865010

PATIENT
  Age: 61 Year
  Sex: Male
  Weight: 90 kg

DRUGS (3)
  1. CAPTOPRIL [Suspect]
     Indication: HYPERTENSION
     Dates: start: 20031001
  2. ALBUTEROL [Concomitant]
     Indication: ASTHMA
     Route: 055
  3. HYDROCHLOROTHIAZIDE [Concomitant]

REACTIONS (3)
  - COUGH [None]
  - DYSPNOEA [None]
  - PHARYNGOLARYNGEAL PAIN [None]
